FAERS Safety Report 25591511 (Version 2)
Quarter: 2025Q3

REPORT INFORMATION
  Report Type: Spontaneous
  Country: IL (occurrence: IL)
  Receive Date: 20250722
  Receipt Date: 20250919
  Transmission Date: 20251021
  Serious: Yes (Other)
  Sender: TEVA
  Company Number: IL-TEVA-VS-3353364

PATIENT
  Age: 46 Year
  Sex: Female

DRUGS (2)
  1. ANASTROZOLE [Suspect]
     Active Substance: ANASTROZOLE
     Indication: Breast cancer
     Route: 065
     Dates: start: 202506
  2. DUPLEX [Concomitant]
     Indication: Blood pressure measurement
     Dosage: TAKES AT NIGHT BEFORE BED

REACTIONS (10)
  - Chest discomfort [Unknown]
  - Hepatic steatosis [Unknown]
  - Wrong technique in product usage process [Unknown]
  - Alopecia [Unknown]
  - Myalgia [Unknown]
  - Arthralgia [Unknown]
  - Visual impairment [Unknown]
  - Fatigue [Unknown]
  - Brain fog [Unknown]
  - Hepatic enzyme increased [Unknown]

NARRATIVE: CASE EVENT DATE: 20250101
